FAERS Safety Report 11706930 (Version 6)
Quarter: 2016Q1

REPORT INFORMATION
  Report Type: Spontaneous
  Country: US (occurrence: US)
  Receive Date: 20151106
  Receipt Date: 20160217
  Transmission Date: 20160525
  Serious: Yes (Other)
  Sender: FDA-Public Use
  Company Number: US-PFIZER INC-2015374369

PATIENT
  Age: 41 Year
  Sex: Female
  Weight: 66 kg

DRUGS (5)
  1. IBRANCE [Suspect]
     Active Substance: PALBOCICLIB
     Dosage: 100 MG, CYCLIC (Q 1-21 Q 28 DAYS)
     Route: 048
  2. ASPIRIN. [Concomitant]
     Active Substance: ASPIRIN
     Dosage: UNK
  3. IBRANCE [Suspect]
     Active Substance: PALBOCICLIB
     Dosage: UNK
     Route: 048
     Dates: end: 20151124
  4. IBRANCE [Suspect]
     Active Substance: PALBOCICLIB
     Indication: BREAST CANCER
     Dosage: 125 MG, DAILY (DAYS 1-21 EVERY 28 DAYS)
     Route: 048
     Dates: start: 20151015, end: 20151124
  5. IBRANCE [Suspect]
     Active Substance: PALBOCICLIB
     Dosage: 100 MG, CYCLIC, (DAY 1-21 Q 28 DAYS)
     Route: 048
     Dates: start: 20151015

REACTIONS (8)
  - Neutropenia [Not Recovered/Not Resolved]
  - Breast cancer [Unknown]
  - Herpes zoster [Recovering/Resolving]
  - Hot flush [Unknown]
  - Irritability [Unknown]
  - Disease progression [Unknown]
  - Menopausal symptoms [Unknown]
  - Contusion [Unknown]

NARRATIVE: CASE EVENT DATE: 20151203
